FAERS Safety Report 20119530 (Version 1)
Quarter: 2021Q4

REPORT INFORMATION
  Report Type: Spontaneous
  Country: NL (occurrence: NL)
  Receive Date: 20211126
  Receipt Date: 20211126
  Transmission Date: 20220303
  Serious: Yes (Life-Threatening, Hospitalization, Other)
  Sender: FDA-Public Use
  Company Number: NL-MLMSERVICE-20211109-3207335-1

PATIENT
  Age: 35 Year
  Sex: Male
  Weight: 124 kg

DRUGS (3)
  1. TOPIRAMATE [Suspect]
     Active Substance: TOPIRAMATE
     Indication: Epilepsy
     Dosage: 2500 MILLIGRAM (NASOGASTRIC TUBE)
     Route: 065
  2. LACOSAMIDE [Concomitant]
     Active Substance: LACOSAMIDE
     Indication: Epilepsy
     Dosage: 50 MILLIGRAM, BID
     Route: 042
  3. LEVETIRACETAM [Concomitant]
     Active Substance: LEVETIRACETAM
     Indication: Epilepsy
     Dosage: 1500 MILLIGRAM, BID (EVERY 12 HOURS)
     Route: 042

REACTIONS (3)
  - Toxicity to various agents [Recovered/Resolved]
  - Product prescribing error [Unknown]
  - Overdose [Unknown]
